FAERS Safety Report 20462115 (Version 2)
Quarter: 2022Q2

REPORT INFORMATION
  Report Type: Report from Study
  Country: CO (occurrence: CO)
  Receive Date: 20220211
  Receipt Date: 20220606
  Transmission Date: 20220721
  Serious: Yes (Other)
  Sender: FDA-Public Use
  Company Number: CO-ABBVIE-22K-036-4273784-00

PATIENT
  Sex: Male
  Weight: 90 kg

DRUGS (4)
  1. HUMIRA [Suspect]
     Active Substance: ADALIMUMAB
     Indication: Psoriasis
     Route: 058
     Dates: end: 20220220
  2. HUMIRA [Suspect]
     Active Substance: ADALIMUMAB
     Indication: Psoriasis
     Route: 058
     Dates: start: 20110323
  3. ADALIMUMAB [Suspect]
     Active Substance: ADALIMUMAB
     Indication: Psoriasis
     Route: 065
  4. DEXAMETHASONE [Concomitant]
     Active Substance: DEXAMETHASONE
     Indication: Pain
     Route: 030
     Dates: start: 202201, end: 202201

REACTIONS (14)
  - Choking [Recovering/Resolving]
  - Dysphonia [Recovering/Resolving]
  - Overweight [Recovering/Resolving]
  - Pulmonary congestion [Recovering/Resolving]
  - Nasal congestion [Recovering/Resolving]
  - Stress [Recovering/Resolving]
  - Glucose tolerance impaired [Recovered/Resolved]
  - Burning sensation [Recovering/Resolving]
  - COVID-19 [Recovering/Resolving]
  - Hypertension [Recovering/Resolving]
  - Blood triglycerides increased [Recovered/Resolved]
  - Blood cholesterol increased [Recovered/Resolved]
  - Pain [Recovering/Resolving]
  - Mucosal disorder [Unknown]

NARRATIVE: CASE EVENT DATE: 20180101
